FAERS Safety Report 4356494-3 (Version None)
Quarter: 2004Q2

REPORT INFORMATION
  Report Type: 
  Country: None (occurrence: None)
  Receive Date: 20040506
  Receipt Date: 20040426
  Transmission Date: 20050107
  Serious: Yes (Hospitalization)
  Sender: FDA-Public Use
  Company Number: US-JNJFOC-20040405821

PATIENT
  Age: 83 Year
  Sex: Male

DRUGS (5)
  1. REMICADE [Suspect]
     Indication: RHEUMATOID ARTHRITIS
     Dosage: INTRAVENOUS
     Route: 042
     Dates: start: 20020213
  2. CELEBREX 9CELECOXIB) [Concomitant]
  3. CALTRATE (CALCIUM CARBONATE) [Concomitant]
  4. ASPIRIN [Concomitant]
  5. DARVOCET [Concomitant]

REACTIONS (2)
  - ANAEMIA [None]
  - DUODENAL ULCER HAEMORRHAGE [None]
